FAERS Safety Report 4786755-5 (Version None)
Quarter: 2005Q4

REPORT INFORMATION
  Report Type: 
  Country: None (occurrence: None)
  Receive Date: 20051003
  Receipt Date: 20051003
  Transmission Date: 20060501
  Serious: Yes (Life-Threatening, Hospitalization)
  Sender: FDA-Public Use
  Company Number: None

PATIENT
  Age: 77 Year
  Sex: Male
  Weight: 68.1303 kg

DRUGS (2)
  1. CABIDOPA/LEVODOPA 25/100 MG/1.5 TABLET/4 TIMES/DAY SUBISTUTE FOR SINME [Suspect]
     Indication: PARKINSONISM
     Dosage: 1.5 TABLETS 4 TIMES/DAY PO
     Route: 048
     Dates: start: 20050918, end: 20050929
  2. ZOLOFT [Suspect]
     Indication: DEPRESSION
     Dosage: ONE TABLET ONCE/DAY PO
     Route: 048
     Dates: start: 20050810, end: 20050928

REACTIONS (14)
  - CHILLS [None]
  - CONFUSIONAL STATE [None]
  - DEPRESSED LEVEL OF CONSCIOUSNESS [None]
  - DIFFICULTY IN WALKING [None]
  - GENERAL PHYSICAL HEALTH DETERIORATION [None]
  - JAUNDICE [None]
  - MALAISE [None]
  - OCULAR ICTERUS [None]
  - PANCREATITIS ACUTE [None]
  - PERIPHERAL COLDNESS [None]
  - PYREXIA [None]
  - TREMOR [None]
  - VIRAL INFECTION [None]
  - VOMITING [None]
